FAERS Safety Report 8481785-4 (Version None)
Quarter: 2012Q3

REPORT INFORMATION
  Report Type: 
  Country: None (occurrence: None)
  Receive Date: 20120702
  Receipt Date: 20120611
  Transmission Date: 20120928
  Serious: Yes (Congenital Anomaly)
  Sender: FDA-Public Use
  Company Number: US-ROCHE-1081744

PATIENT
  Sex: Female

DRUGS (1)
  1. NAPROXEN [Suspect]
     Indication: PRODUCT USED FOR UNKNOWN INDICATION

REACTIONS (34)
  - SPINA BIFIDA [None]
  - HYDROCEPHALUS [None]
  - ANOTIA [None]
  - AMNIOTIC BAND SYNDROME [None]
  - CONGENITAL ANOMALY [None]
  - ANOMALOUS PULMONARY VENOUS CONNECTION [None]
  - INTESTINAL ATRESIA [None]
  - ANOPHTHALMOS [None]
  - CLEFT PALATE [None]
  - HYPOSPADIAS [None]
  - DIAPHRAGMATIC HERNIA [None]
  - RECTAL ATRESIA [None]
  - CRANIORACHISCHISIS [None]
  - CATARACT [None]
  - EXOMPHALOS [None]
  - GASTROSCHISIS [None]
  - ANENCEPHALY [None]
  - LIMB REDUCTION DEFECT [None]
  - VENTRICULAR SEPTAL DEFECT [None]
  - PULMONARY VALVE STENOSIS [None]
  - MICROPHTHALMOS [None]
  - MICROTIA [None]
  - CLEFT LIP [None]
  - ANAL ATRESIA [None]
  - FALLOT'S TETRALOGY [None]
  - HYPOPLASTIC LEFT HEART SYNDROME [None]
  - ENCEPHALOCELE [None]
  - ANORECTAL STENOSIS [None]
  - CRANIOSYNOSTOSIS [None]
  - AORTIC STENOSIS [None]
  - OESOPHAGEAL ATRESIA [None]
  - TRANSPOSITION OF THE GREAT VESSELS [None]
  - COARCTATION OF THE AORTA [None]
  - MATERNAL EXPOSURE TIMING UNSPECIFIED [None]
